FAERS Safety Report 6234259-5 (Version None)
Quarter: 2009Q2

REPORT INFORMATION
  Report Type: 
  Country: None (occurrence: None)
  Receive Date: 20090612
  Receipt Date: 20090601
  Transmission Date: 20091009
  Serious: Yes (Hospitalization)
  Sender: FDA-Public Use
  Company Number: PHO-2009-008

PATIENT
  Age: 64 Year
  Sex: Male

DRUGS (1)
  1. PHOTOFRIN [Suspect]
     Indication: BILE DUCT CANCER
     Dosage: 117.5 MG, IV
     Route: 042
     Dates: start: 20090515

REACTIONS (3)
  - ABDOMINAL DISTENSION [None]
  - PYREXIA [None]
  - VOMITING [None]
